FAERS Safety Report 5612256-8 (Version None)
Quarter: 2008Q1

REPORT INFORMATION
  Report Type: 
  Country: None (occurrence: None)
  Receive Date: 20080131
  Receipt Date: 20080131
  Transmission Date: 20080703
  Serious: Yes (Hospitalization, Disabling)
  Sender: FDA-Public Use
  Company Number: None

PATIENT
  Age: 46 Year
  Sex: Male
  Weight: 70 kg

DRUGS (2)
  1. REOPRO [Suspect]
     Indication: ACUTE MYOCARDIAL INFARCTION
     Route: 040
     Dates: start: 20080114, end: 20080115
  2. REOPRO [Suspect]
     Indication: CORONARY ANGIOPLASTY
     Route: 040
     Dates: start: 20080114, end: 20080115

REACTIONS (1)
  - PULMONARY ALVEOLAR HAEMORRHAGE [None]
